FAERS Safety Report 7186799-2 (Version None)
Quarter: 2010Q4

REPORT INFORMATION
  Report Type: 
  Country: None (occurrence: None)
  Receive Date: 20101222
  Receipt Date: 20101217
  Transmission Date: 20110411
  Serious: Yes (Other)
  Sender: FDA-Public Use
  Company Number: A0900213A

PATIENT
  Age: 64 Year
  Sex: Male

DRUGS (1)
  1. AVODART [Suspect]
     Dosage: 1CAP PER DAY
     Route: 048

REACTIONS (3)
  - FOOT FRACTURE [None]
  - OEDEMA PERIPHERAL [None]
  - PAIN IN EXTREMITY [None]
